FAERS Safety Report 4379604-0 (Version None)
Quarter: 2004Q2

REPORT INFORMATION
  Report Type: 
  Country: None (occurrence: None)
  Receive Date: 20040414
  Receipt Date: 20040216
  Transmission Date: 20050107
  Serious: No
  Sender: FDA-Public Use
  Company Number: 2004S1000056

PATIENT
  Sex: Female

DRUGS (1)
  1. CUBICIN [Suspect]
     Dates: start: 20040205

REACTIONS (1)
  - BLOOD CREATINE PHOSPHOKINASE INCREASED [None]
